FAERS Safety Report 9257994 (Version 1)
Quarter: 2013Q2

REPORT INFORMATION
  Report Type: Report from Study
  Country: US (occurrence: US)
  Receive Date: 20130426
  Receipt Date: 20130426
  Transmission Date: 20140414
  Serious: Yes (Other)
  Sender: FDA-Public Use
  Company Number: US-ROCHE-1188593

PATIENT
  Age: 26 Year
  Sex: Female
  Weight: 81.72 kg

DRUGS (2)
  1. ERIVEDGE [Suspect]
     Indication: BASAL CELL CARCINOMA
     Route: 048
     Dates: start: 201211
  2. ERIVEDGE [Suspect]
     Route: 048
     Dates: start: 20121224, end: 20130214

REACTIONS (12)
  - Upper respiratory tract infection [Recovered/Resolved]
  - Dyspnoea [Recovered/Resolved]
  - Chest pain [Recovered/Resolved]
  - Fatigue [Not Recovered/Not Resolved]
  - Muscle spasms [Not Recovered/Not Resolved]
  - Chest discomfort [Not Recovered/Not Resolved]
  - Pharyngeal oedema [Recovering/Resolving]
  - Dyspnoea [Recovering/Resolving]
  - Feeling cold [Not Recovered/Not Resolved]
  - Joint lock [Not Recovered/Not Resolved]
  - Pain [Not Recovered/Not Resolved]
  - Somnolence [Not Recovered/Not Resolved]
